FAERS Safety Report 6960135-6 (Version None)
Quarter: 2010Q3

REPORT INFORMATION
  Report Type: 
  Country: None (occurrence: None)
  Receive Date: 20100901
  Receipt Date: 20100830
  Transmission Date: 20110219
  Serious: Yes (Death)
  Sender: FDA-Public Use
  Company Number: PHHY2010IR57059

PATIENT
  Age: 85 Year
  Sex: Female

DRUGS (1)
  1. EXELON [Suspect]
     Indication: LOSS OF CONSCIOUSNESS
     Dosage: 1.5 MG, DAILY
     Route: 048

REACTIONS (1)
  - SUDDEN DEATH [None]
